FAERS Safety Report 7656037-2 (Version None)
Quarter: 2011Q3

REPORT INFORMATION
  Report Type: 
  Country: None (occurrence: None)
  Receive Date: 20110804
  Receipt Date: 20110720
  Transmission Date: 20111222
  Serious: Yes (Hospitalization, Other)
  Sender: FDA-Public Use
  Company Number: US-ELI_LILLY_AND_COMPANY-US201106002628

PATIENT
  Sex: Female
  Weight: 64.399 kg

DRUGS (1)
  1. FORTEO [Suspect]
     Dosage: 20 UG, QD
     Route: 058
     Dates: start: 20090825

REACTIONS (3)
  - HEPATIC CYST [None]
  - PAIN [None]
  - CHOLECYSTECTOMY [None]
